FAERS Safety Report 9782591 (Version 1)
Quarter: 2013Q4

REPORT INFORMATION
  Report Type: Spontaneous
  Country: PT (occurrence: None)
  Receive Date: 20131220
  Receipt Date: 20131220
  Transmission Date: 20140711
  Serious: Yes (Hospitalization, Other)
  Sender: FDA-Public Use
  Company Number: 2013P1021996

PATIENT
  Age: 66 Year
  Sex: 0

DRUGS (4)
  1. LITHIUM [Suspect]
     Indication: BIPOLAR DISORDER
  2. CYAMENALINE [Concomitant]
  3. RISPERIDONE [Concomitant]
  4. TOPIRAMATE [Concomitant]

REACTIONS (12)
  - Vomiting [None]
  - Fatigue [None]
  - Gait disturbance [None]
  - Pupil fixed [None]
  - Blood calcium abnormal [None]
  - Hypothermia [None]
  - Hypotension [None]
  - Bradycardia [None]
  - Renal failure acute [None]
  - Hypothyroidism [None]
  - Hyperparathyroidism [None]
  - Toxicity to various agents [None]
